FAERS Safety Report 5293623-1 (Version None)
Quarter: 2007Q2

REPORT INFORMATION
  Report Type: 
  Country: None (occurrence: None)
  Receive Date: 20070411
  Receipt Date: 20070405
  Transmission Date: 20071010
  Serious: Yes (Death)
  Sender: FDA-Public Use
  Company Number: AU-ROXANE LABORATORIES, INC-2007-BP-04753RO

PATIENT
  Age: 25 Year
  Sex: Male

DRUGS (8)
  1. METHOTREXATE [Suspect]
     Indication: NON-HODGKIN'S LYMPHOMA
  2. CYCLOPHOSPHAMIDE [Suspect]
     Indication: NON-HODGKIN'S LYMPHOMA
  3. DEXAMETHASONE [Suspect]
     Indication: NON-HODGKIN'S LYMPHOMA
  4. VINCRISTINE [Suspect]
     Indication: NON-HODGKIN'S LYMPHOMA
  5. DOXORUBICIN HCL [Suspect]
     Indication: NON-HODGKIN'S LYMPHOMA
  6. CYTARABINE [Suspect]
     Indication: NON-HODGKIN'S LYMPHOMA
  7. IDARUBICIN HCL [Suspect]
     Indication: NON-HODGKIN'S LYMPHOMA
  8. FLUDARABINE [Suspect]
     Indication: NON-HODGKIN'S LYMPHOMA

REACTIONS (9)
  - CEREBRAL HAEMORRHAGE [None]
  - CEREBRAL INFARCTION [None]
  - FEBRILE NEUTROPENIA [None]
  - GASTROINTESTINAL HAEMORRHAGE [None]
  - HAEMATURIA [None]
  - HODGKIN'S DISEASE RECURRENT [None]
  - MYELOPATHY [None]
  - PARALYSIS FLACCID [None]
  - SEPSIS [None]
